FAERS Safety Report 10715242 (Version 1)
Quarter: 2015Q1

REPORT INFORMATION
  Report Type: Report from Study
  Country: CA (occurrence: CA)
  Receive Date: 20150116
  Receipt Date: 20150116
  Transmission Date: 20150721
  Serious: Yes (Death)
  Sender: FDA-Public Use
  Company Number: CA-AMGEN-CANSL2015003328

PATIENT
  Age: 74 Year
  Sex: Male

DRUGS (1)
  1. XGEVA [Suspect]
     Active Substance: DENOSUMAB
     Indication: NEUROENDOCRINE CARCINOMA OF THE SKIN
     Dosage: 1.7 ML (120 MG), UNK
     Route: 065
     Dates: start: 20140218

REACTIONS (1)
  - Death [Fatal]
